FAERS Safety Report 6556218-5 (Version None)
Quarter: 2010Q1

REPORT INFORMATION
  Report Type: 
  Country: None (occurrence: None)
  Receive Date: 20100128
  Receipt Date: 20090709
  Transmission Date: 20100710
  Serious: No
  Sender: FDA-Public Use
  Company Number: US-TEVA-202321USA

PATIENT
  Sex: Female

DRUGS (7)
  1. COPAXONE [Suspect]
     Indication: MULTIPLE SCLEROSIS
     Dosage: QD
     Route: 058
     Dates: start: 20090620
  2. VITAMIN B-12 [Concomitant]
     Dosage: 100 MCG QD
     Route: 048
  3. CALCIUM + D [Concomitant]
     Dosage: 600MG/200MG QD
     Route: 048
  4. DICYCLOMINE [Concomitant]
     Dosage: 20 MG QD
     Route: 048
  5. NEURONTIN [Concomitant]
     Dosage: 300 MG QD
     Route: 048
  6. IBUPROFEN [Concomitant]
     Dosage: 600 MG BID
     Route: 048
  7. ACETAMINOPHEN [Concomitant]
     Dosage: 500 MG QID
     Route: 048

REACTIONS (2)
  - FATIGUE [None]
  - SYNCOPE [None]
